FAERS Safety Report 24051726 (Version 3)
Quarter: 2024Q4

REPORT INFORMATION
  Report Type: Report from Study
  Country: DE (occurrence: DE)
  Receive Date: 20240704
  Receipt Date: 20241121
  Transmission Date: 20250115
  Serious: Yes (Hospitalization, Other)
  Sender: ALEXION PHARMACEUTICALS
  Company Number: 2021A104732

PATIENT
  Weight: 65 kg

DRUGS (14)
  1. FULVESTRANT [Suspect]
     Active Substance: FULVESTRANT
     Indication: Breast cancer metastatic
     Dosage: 500 MG, QD (EVERY 4 WEEKS), FREQUENCY: Q4WK
  2. FULVESTRANT [Suspect]
     Active Substance: FULVESTRANT
     Indication: Breast cancer
  3. RIBOCICLIB [Suspect]
     Active Substance: RIBOCICLIB
     Indication: Breast cancer metastatic
     Dosage: 400 MG, QD (21 DAYS INTAKE, 7 DAYS PAUSE)
  4. RIBOCICLIB [Suspect]
     Active Substance: RIBOCICLIB
     Indication: Breast cancer
     Dosage: 400 MG, QD (21 DAYS INTAKE, 7 DAYS PAUSE)
  5. RIBOCICLIB [Suspect]
     Active Substance: RIBOCICLIB
     Indication: Hormone receptor positive HER2 negative breast cancer
     Dosage: 600 MG, QD (21 DAYS INTAKE, 7 DAYS PAUSE)
  6. RIBOCICLIB [Suspect]
     Active Substance: RIBOCICLIB
     Indication: Hormone receptor positive HER2 negative breast cancer
     Dosage: 200 MG, QD (21 DAYS INTAKE, 7 DAYS PAUSE)
  7. RIBOCICLIB [Suspect]
     Active Substance: RIBOCICLIB
     Dosage: 200 MG, QD (21 DAYS INTAKE, 7 DAYS PAUSE)
  8. RIBOCICLIB [Suspect]
     Active Substance: RIBOCICLIB
     Dosage: 200 MG, QD (21 DAYS INTAKE, 7 DAYS PAUSE)
  9. RIBOCICLIB [Suspect]
     Active Substance: RIBOCICLIB
     Dosage: 400 MG, QD (21 DAYS INTAKE, 7 DAYS PAUSE)
  10. RIBOCICLIB [Suspect]
     Active Substance: RIBOCICLIB
     Dosage: 600 MG, QD (21 DAYS INTAKE, 7 DAYS PAUSE)
  11. AMANTADINE [Concomitant]
     Active Substance: AMANTADINE
     Indication: Parkinson^s disease
     Dosage: 200 MG
  12. L DOPA [Concomitant]
     Active Substance: LEVODOPA
     Indication: Parkinson^s disease
     Dosage: 100 MG (3X)
  13. L DOPA [Concomitant]
     Active Substance: LEVODOPA
     Indication: Parkinsonism
  14. AMANTADINE [Concomitant]
     Active Substance: AMANTADINE
     Indication: Parkinsonism
     Dosage: 200 MG

REACTIONS (33)
  - Aspiration [Recovering/Resolving]
  - Choking [Recovering/Resolving]
  - Cataract [Not Recovered/Not Resolved]
  - Dyspnoea [Unknown]
  - Endocarditis [Unknown]
  - Fall [Recovering/Resolving]
  - Goitre [Not Recovered/Not Resolved]
  - Gaze palsy [Unknown]
  - Asthenia [Not Recovered/Not Resolved]
  - General physical health deterioration [Recovering/Resolving]
  - Dizziness [Unknown]
  - Fatigue [Not Recovered/Not Resolved]
  - Head injury [Unknown]
  - Haematoma [Recovering/Resolving]
  - Inflammation [Unknown]
  - Mobility decreased [Not Recovered/Not Resolved]
  - Muscular weakness [Not Recovered/Not Resolved]
  - Neutropenia [Recovered/Resolved]
  - Ocular discomfort [Not Recovered/Not Resolved]
  - Polyneuropathy [Unknown]
  - Periorbital haematoma [Recovering/Resolving]
  - Respiratory failure [Unknown]
  - Rib fracture [Unknown]
  - Renal impairment [Recovering/Resolving]
  - Spinal cord haematoma [Unknown]
  - Spinal fracture [Recovering/Resolving]
  - Speech disorder [Not Recovered/Not Resolved]
  - Sleep disorder [Unknown]
  - Sensory disturbance [Not Recovered/Not Resolved]
  - Spinal cord haematoma [Unknown]
  - Swelling [Recovering/Resolving]
  - Skin laceration [Recovering/Resolving]
  - Vocal cord paralysis [Not Recovered/Not Resolved]
